FAERS Safety Report 8842347 (Version 1)
Quarter: 2012Q4

REPORT INFORMATION
  Report Type: 
  Country: US (occurrence: US)
  Receive Date: 20121016
  Receipt Date: 20121016
  Transmission Date: 20130627
  Serious: Yes (Death, Other)
  Sender: FDA-Public Use
  Company Number: US-ROCHE-1096865

PATIENT
  Sex: Male

DRUGS (1)
  1. XELODA [Suspect]
     Indication: COLON CANCER
     Route: 065
     Dates: start: 20100324, end: 20100419

REACTIONS (3)
  - Colon cancer [Fatal]
  - Metastases to liver [Unknown]
  - Metastases to lung [Unknown]
